FAERS Safety Report 5368554-9 (Version None)
Quarter: 2007Q2

REPORT INFORMATION
  Report Type: 
  Country: None (occurrence: None)
  Receive Date: 20070620
  Receipt Date: 20070604
  Transmission Date: 20071010
  Serious: Yes (Congenital Anomaly)
  Sender: FDA-Public Use
  Company Number: 8011167

PATIENT
  Sex: Male
  Weight: 3.636 kg

DRUGS (5)
  1. KEPPRA [Suspect]
     Indication: EPILEPSY
     Dosage: 1000 MG TRP
     Route: 064
     Dates: start: 20050301, end: 20050615
  2. KEPPRA [Suspect]
     Indication: EPILEPSY
     Dosage: 1500 MG TRP
     Route: 064
     Dates: start: 20050616, end: 20050815
  3. KEPPRA [Suspect]
     Indication: EPILEPSY
     Dosage: 2000 MG TRP
     Route: 064
     Dates: start: 20050816, end: 20051209
  4. KEPPRA [Suspect]
     Indication: EPILEPSY
     Dosage: NI TRM
     Route: 063
     Dates: start: 20051201
  5. FOLATE [Concomitant]

REACTIONS (6)
  - CONGENITAL CHOROID PLEXUS CYST [None]
  - DRUG EXPOSURE DURING PREGNANCY [None]
  - DRUG EXPOSURE VIA BREAST MILK [None]
  - GASTROOESOPHAGEAL REFLUX DISEASE [None]
  - TREMOR [None]
  - WEIGHT GAIN POOR [None]
